FAERS Safety Report 7979843-3 (Version None)
Quarter: 2011Q4

REPORT INFORMATION
  Report Type: 
  Country: None (occurrence: None)
  Receive Date: 20111214
  Receipt Date: 20111206
  Transmission Date: 20120403
  Serious: Yes (Death)
  Sender: FDA-Public Use
  Company Number: CA-JNJFOC-20111203590

PATIENT
  Sex: Male

DRUGS (1)
  1. IBUPROFEN [Suspect]
     Indication: FOETAL EXPOSURE DURING PREGNANCY
     Route: 065

REACTIONS (1)
  - HAEMORRHAGE INTRACRANIAL [None]
